FAERS Safety Report 9279996 (Version 1)
Quarter: 2013Q2

REPORT INFORMATION
  Report Type: Spontaneous
  Country: GB (occurrence: GB)
  Receive Date: 20130509
  Receipt Date: 20130509
  Transmission Date: 20140414
  Serious: Yes (Hospitalization)
  Sender: FDA-Public Use
  Company Number: GB-PFIZER INC-2006143016

PATIENT
  Age: 73 Year
  Sex: Male
  Weight: 69 kg

DRUGS (6)
  1. IBUPROFEN [Suspect]
     Dosage: 400 MG 3 TIMES DAILY
     Route: 048
     Dates: start: 20061005, end: 20061017
  2. DEXAMETHASONE ACETATE [Concomitant]
     Dosage: 2 MG DAILY
     Route: 048
     Dates: start: 20061005
  3. FUROSEMIDE [Concomitant]
     Indication: JOINT SWELLING
     Dosage: 40 MG DAILY
     Route: 048
  4. NULYTELY [Concomitant]
     Indication: CONSTIPATION
     Dosage: UNSPECIFIED
     Route: 048
     Dates: start: 20061005, end: 20061017
  5. FLUOROURACIL [Concomitant]
     Indication: CHEMOTHERAPY
     Dosage: UNSPECIFIED
     Route: 065
     Dates: end: 20060628
  6. OXALIPLATIN [Concomitant]
     Indication: CHEMOTHERAPY
     Dosage: UNSPECIFIED
     Route: 065
     Dates: end: 20060628

REACTIONS (1)
  - Large intestine perforation [Recovering/Resolving]
